FAERS Safety Report 5480493-1 (Version None)
Quarter: 2007Q4

REPORT INFORMATION
  Report Type: 
  Country: None (occurrence: None)
  Receive Date: 20071009
  Receipt Date: 20071002
  Transmission Date: 20080405
  Serious: Yes (Disabling)
  Sender: FDA-Public Use
  Company Number: FR-ALLERGAN-0710429US

PATIENT
  Sex: Female
  Weight: 60 kg

DRUGS (1)
  1. VISTABEL [Suspect]
     Indication: SKIN WRINKLING
     Dosage: 46 UNITS, SINGLE
     Route: 030
     Dates: start: 20070912, end: 20070912

REACTIONS (5)
  - ABSCESS [None]
  - ASTHENIA [None]
  - HAEMATOMA [None]
  - OEDEMA [None]
  - PYREXIA [None]
